FAERS Safety Report 13434520 (Version 1)
Quarter: 2017Q2

REPORT INFORMATION
  Report Type: Spontaneous
  Country: US (occurrence: US)
  Receive Date: 20170413
  Receipt Date: 20170413
  Transmission Date: 20170830
  Serious: No
  Sender: FDA-Public Use
  Company Number: US-PFIZER INC-2017151444

PATIENT
  Age: 33 Year
  Sex: Female

DRUGS (16)
  1. GENOTROPIN MQ [Suspect]
     Active Substance: SOMATROPIN
     Indication: GROWTH HORMONE DEFICIENCY
     Dosage: 0.4 MG, CYCLIC (6 DAYS/WEEK)
     Route: 058
  2. GENOTROPIN MQ [Suspect]
     Active Substance: SOMATROPIN
     Dosage: 0.4 MG, CYCLIC (5 DAYS/WEEK)
     Route: 058
  3. WELLBUTRIN SR [Concomitant]
     Active Substance: BUPROPION HYDROCHLORIDE
     Dosage: 100 MG, 2X/DAY
     Route: 048
  4. VIVELLE [Concomitant]
     Active Substance: ESTRADIOL
     Dosage: 0.1 MG/24H, CYCLIC (APPLY 1 PATCH 2 DAYS/WEEK)
     Route: 062
  5. MUCINEX [Concomitant]
     Active Substance: GUAIFENESIN
     Dosage: 600 MG, 2X/DAY
     Route: 048
  6. DOXYCYCLINE HYCLATE. [Concomitant]
     Active Substance: DOXYCYCLINE HYCLATE
     Dosage: 100 MG, 2X/DAY
     Route: 048
  7. FISH OIL [Concomitant]
     Active Substance: FISH OIL
     Dosage: 1 G, UNK
     Route: 048
  8. UBIQUINONE [Concomitant]
     Active Substance: UBIDECARENONE
     Dosage: 150 MG, DAILY
     Route: 048
  9. PROVIGIL [Concomitant]
     Active Substance: MODAFINIL
     Dosage: 100 MG, AS NEEDED
     Route: 048
  10. GONAL F RFF [Concomitant]
     Dosage: 75 IU, DAILY
     Route: 058
  11. PRENATAL [Concomitant]
     Active Substance: VITAMINS
     Dosage: UNK, DAILY
     Route: 048
  12. MENOPUR [Concomitant]
     Active Substance: FOLLITROPIN\LUTEINIZING HORMONE
     Dosage: 225 IU, DAILY
     Route: 058
  13. PROVERA [Concomitant]
     Active Substance: MEDROXYPROGESTERONE ACETATE
     Dosage: 10 MG, DAILY
     Route: 048
  14. LIDODERM [Concomitant]
     Active Substance: LIDOCAINE
     Dosage: 1 DF, AS NEEDED (APPLY 1 PATCH TO A CLEAN DRY AREA, LEAVE PATCH ON FOR 12 HOURS, THEN REMOVE)
  15. MENOPUR [Concomitant]
     Active Substance: FOLLITROPIN\LUTEINIZING HORMONE
     Dosage: 75 IU, DAILY
     Route: 058
  16. IRON [Concomitant]
     Active Substance: IRON
     Dosage: UNK, DAILY
     Route: 048

REACTIONS (3)
  - Viral upper respiratory tract infection [Unknown]
  - Asthenia [Unknown]
  - Drug dose omission [Unknown]
